FAERS Safety Report 8575377-6 (Version None)
Quarter: 2012Q3

REPORT INFORMATION
  Report Type: 
  Country: None (occurrence: None)
  Receive Date: 20120807
  Receipt Date: 20120801
  Transmission Date: 20120928
  Serious: Yes (Death)
  Sender: FDA-Public Use
  Company Number: US-PFIZER INC-2012187840

PATIENT
  Age: 56 Year
  Sex: Female

DRUGS (1)
  1. XALKORI [Suspect]
     Indication: LUNG NEOPLASM MALIGNANT
     Dosage: 250 MG, UNK
     Route: 048
     Dates: start: 20120705

REACTIONS (2)
  - DISEASE PROGRESSION [None]
  - LUNG NEOPLASM MALIGNANT [None]
